FAERS Safety Report 17717236 (Version 1)
Quarter: 2020Q2

REPORT INFORMATION
  Report Type: Spontaneous
  Country: IN (occurrence: IN)
  Receive Date: 20200428
  Receipt Date: 20200428
  Transmission Date: 20200714
  Serious: Yes (Hospitalization, Other)
  Sender: FDA-Public Use
  Company Number: IN-PFIZER INC-2020165298

PATIENT
  Age: 55 Year
  Sex: Female

DRUGS (1)
  1. AMLODIPINE BESILATE [Suspect]
     Active Substance: AMLODIPINE BESYLATE
     Indication: HYPERTENSION
     Dosage: 10 MG, 1X/DAY
     Route: 048

REACTIONS (5)
  - Gingival bleeding [Recovered/Resolved]
  - Gingival hypertrophy [Recovered/Resolved]
  - Breath odour [Recovered/Resolved]
  - Oral discharge [Recovered/Resolved]
  - Mastication disorder [Recovered/Resolved]
